FAERS Safety Report 23040975 (Version 4)
Quarter: 2023Q4

REPORT INFORMATION
  Report Type: Report from Study
  Country: CA (occurrence: CA)
  Receive Date: 20231006
  Receipt Date: 20231020
  Transmission Date: 20240109
  Serious: Yes (Other)
  Sender: FDA-Public Use
  Company Number: CA-HLS-202302316

PATIENT
  Age: 73 Year
  Sex: Female

DRUGS (1)
  1. CLOZARIL [Suspect]
     Active Substance: CLOZAPINE
     Indication: Product used for unknown indication
     Route: 048
     Dates: start: 19990322, end: 20231006

REACTIONS (3)
  - Neutropenia [Unknown]
  - Urinary tract infection [Unknown]
  - White blood cell count [Unknown]

NARRATIVE: CASE EVENT DATE: 20231003
